FAERS Safety Report 20029460 (Version 1)
Quarter: 2021Q4

REPORT INFORMATION
  Report Type: Report from Study
  Country: BR (occurrence: BR)
  Receive Date: 20211103
  Receipt Date: 20211103
  Transmission Date: 20220303
  Serious: Yes (Hospitalization)
  Sender: FDA-Public Use
  Company Number: BR-JNJFOC-20211056123

PATIENT
  Age: 38 Year
  Sex: Female
  Weight: 79.8 kg

DRUGS (1)
  1. REMICADE [Suspect]
     Active Substance: INFLIXIMAB
     Indication: Rheumatoid arthritis
     Route: 042
     Dates: start: 20210101

REACTIONS (2)
  - Oral fungal infection [Unknown]
  - Autoimmune lung disease [Not Recovered/Not Resolved]

NARRATIVE: CASE EVENT DATE: 20210901
